FAERS Safety Report 20151893 (Version 1)
Quarter: 2021Q4

REPORT INFORMATION
  Report Type: Spontaneous
  Country: US (occurrence: None)
  Receive Date: 20211204
  Receipt Date: 20211204
  Transmission Date: 20220303
  Serious: No
  Sender: FDA-Public Use
  Company Number: None

PATIENT
  Sex: Female

DRUGS (1)
  1. DEXTROAMPHETAMINE [Suspect]
     Active Substance: DEXTROAMPHETAMINE
     Indication: Attention deficit hyperactivity disorder
     Dosage: OTHER QUANTITY : 90 TABLET(S);?FREQUENCY : 3 TIMES A DAY;?
     Route: 048
     Dates: start: 20211202, end: 20211204

REACTIONS (9)
  - Product substitution issue [None]
  - Headache [None]
  - Myalgia [None]
  - Muscle spasms [None]
  - Dyspnoea [None]
  - Depressed level of consciousness [None]
  - Memory impairment [None]
  - Insomnia [None]
  - Impaired quality of life [None]

NARRATIVE: CASE EVENT DATE: 20211202
